FAERS Safety Report 14981554 (Version 1)
Quarter: 2018Q2

REPORT INFORMATION
  Report Type: Report from Study
  Country: None (occurrence: US)
  Receive Date: 20180607
  Receipt Date: 20180607
  Transmission Date: 20180711
  Serious: Yes (Hospitalization, Other)
  Sender: FDA-Public Use
  Company Number: US-ABBVIE-18K-163-2356054-00

PATIENT
  Sex: Male
  Weight: 52.21 kg

DRUGS (7)
  1. HUMIRA [Suspect]
     Active Substance: ADALIMUMAB
     Indication: PSORIASIS
     Route: 058
     Dates: start: 201608, end: 201706
  2. LOSARTAN. [Concomitant]
     Active Substance: LOSARTAN
     Indication: HYPERTENSION
  3. FOLIC ACID. [Concomitant]
     Active Substance: FOLIC ACID
     Indication: PRODUCT USED FOR UNKNOWN INDICATION
  4. HUMIRA [Suspect]
     Active Substance: ADALIMUMAB
     Indication: PSORIATIC ARTHROPATHY
     Route: 058
     Dates: start: 201708
  5. SERTRALINE HCL [Concomitant]
     Active Substance: SERTRALINE HYDROCHLORIDE
     Indication: PRODUCT USED FOR UNKNOWN INDICATION
  6. CREON 5 [Concomitant]
     Indication: PRODUCT USED FOR UNKNOWN INDICATION
  7. ZANTAC [Concomitant]
     Active Substance: RANITIDINE HYDROCHLORIDE
     Indication: PRODUCT USED FOR UNKNOWN INDICATION

REACTIONS (12)
  - Cholecystectomy [Unknown]
  - Feeling of body temperature change [Recovered/Resolved]
  - Abdominal adhesions [Unknown]
  - Nephrolithiasis [Recovered/Resolved]
  - Nausea [Recovered/Resolved]
  - Pancreatic failure [Recovered/Resolved]
  - Pancreatic mass [Recovered/Resolved]
  - Nephrolithiasis [Recovered/Resolved]
  - Pancreatic carcinoma [Recovered/Resolved]
  - Pancreatic enlargement [Recovered/Resolved]
  - Dizziness [Recovered/Resolved]
  - Type 1 diabetes mellitus [Not Recovered/Not Resolved]

NARRATIVE: CASE EVENT DATE: 2017
